FAERS Safety Report 9409019 (Version 2)
Quarter: 2013Q3

REPORT INFORMATION
  Report Type: Spontaneous
  Country: JP (occurrence: JP)
  Receive Date: 20130719
  Receipt Date: 20130726
  Transmission Date: 20140515
  Serious: Yes (Other)
  Sender: FDA-Public Use
  Company Number: JP-BIOGENIDEC-2013BI056828

PATIENT
  Age: 43 Year
  Sex: Female

DRUGS (3)
  1. AVONEX [Suspect]
     Indication: RELAPSING-REMITTING MULTIPLE SCLEROSIS
     Route: 030
     Dates: start: 20080201, end: 20080222
  2. AVONEX [Suspect]
     Indication: RELAPSING-REMITTING MULTIPLE SCLEROSIS
     Route: 030
     Dates: start: 20080229, end: 201305
  3. TERNELIN [Concomitant]
     Dates: end: 201306

REACTIONS (1)
  - Stillbirth [Unknown]
